APPROVED DRUG PRODUCT: SAVAYSA
Active Ingredient: EDOXABAN TOSYLATE
Strength: EQ 30MG BASE
Dosage Form/Route: TABLET;ORAL
Application: N206316 | Product #002
Applicant: DAIICHI SANKYO INC
Approved: Jan 8, 2015 | RLD: Yes | RS: No | Type: RX

PATENTS:
Patent 9149532 | Expires: Mar 28, 2028
Patent 7365205 | Expires: Apr 18, 2027

EXCLUSIVITY:
Code: M-14 | Date: Oct 18, 2026